FAERS Safety Report 7958126-1 (Version None)
Quarter: 2011Q4

REPORT INFORMATION
  Report Type: 
  Country: None (occurrence: None)
  Receive Date: 20111205
  Receipt Date: 20111129
  Transmission Date: 20120403
  Serious: Yes (Death)
  Sender: FDA-Public Use
  Company Number: US-ASTRAZENECA-2011SE72415

PATIENT
  Age: 77 Year
  Sex: Female

DRUGS (1)
  1. GEFITINIB [Suspect]
     Route: 048

REACTIONS (1)
  - DEATH [None]
